FAERS Safety Report 8276660-4 (Version None)
Quarter: 2012Q2

REPORT INFORMATION
  Report Type: 
  Country: None (occurrence: None)
  Receive Date: 20120406
  Receipt Date: 20120323
  Transmission Date: 20120825
  Serious: Yes (Other)
  Sender: FDA-Public Use
  Company Number: DSA_55779_2012

PATIENT
  Age: 73 Year
  Sex: Male

DRUGS (3)
  1. ENALAPRIL MALEATE [Suspect]
     Indication: PRODUCT USED FOR UNKNOWN INDICATION
     Dosage: (DF ORAL)
     Route: 048
     Dates: start: 20070101
  2. DIUREX /00206601/ [Concomitant]
  3. PROPRAL [Concomitant]

REACTIONS (3)
  - BLOOD PRESSURE INCREASED [None]
  - CATARACT [None]
  - VISUAL IMPAIRMENT [None]
